FAERS Safety Report 7546089-2 (Version None)
Quarter: 2011Q2

REPORT INFORMATION
  Report Type: 
  Country: None (occurrence: None)
  Receive Date: 20110614
  Receipt Date: 20110603
  Transmission Date: 20111010
  Serious: Yes (Other)
  Sender: FDA-Public Use
  Company Number: PHHY2011CA42854

PATIENT
  Sex: Female

DRUGS (7)
  1. YASMIN [Concomitant]
     Dosage: UNK
  2. VITAMIN B-12 [Concomitant]
     Dosage: UNK
  3. GILENYA [Suspect]
     Indication: RELAPSING-REMITTING MULTIPLE SCLEROSIS
     Dosage: 0.5 MG, DAILY
     Route: 048
     Dates: start: 20110505
  4. VITAMIN D [Concomitant]
     Dosage: UNK
  5. ESCITALOPRAM [Concomitant]
     Dosage: UNK
  6. ZOMIG [Concomitant]
     Dosage: UNK
  7. INDERAL [Concomitant]
     Dosage: UNK

REACTIONS (3)
  - DYSARTHRIA [None]
  - EYE PAIN [None]
  - HEADACHE [None]
